FAERS Safety Report 20504147 (Version 3)
Quarter: 2022Q1

REPORT INFORMATION
  Report Type: Report from Study
  Country: JP (occurrence: JP)
  Receive Date: 20220222
  Receipt Date: 20220320
  Transmission Date: 20220424
  Serious: Yes (Other)
  Sender: FDA-Public Use
  Company Number: JP-JNJFOC-20220240398

PATIENT

DRUGS (1)
  1. SIMPONI [Suspect]
     Active Substance: GOLIMUMAB
     Indication: Product used for unknown indication
     Dosage: DOSE UNKNOWN
     Route: 058

REACTIONS (12)
  - Pneumonia [Unknown]
  - Tuberculous pleurisy [Unknown]
  - Breast cancer [Unknown]
  - Oropharyngeal cancer [Unknown]
  - Nasal cavity cancer [Unknown]
  - Lymphoma [Unknown]
  - Cardiac failure [Unknown]
  - Lung abscess [Unknown]
  - Rash [Unknown]
  - Liver disorder [Unknown]
  - Adverse event [Unknown]
  - Drug ineffective [Unknown]
